FAERS Safety Report 9332745 (Version 2)
Quarter: 2013Q2

REPORT INFORMATION
  Report Type: Spontaneous
  Country: US (occurrence: US)
  Receive Date: 20130606
  Receipt Date: 20130617
  Transmission Date: 20140414
  Serious: Yes (Other)
  Sender: FDA-Public Use
  Company Number: US-PFIZER INC-2013171144

PATIENT
  Age: 71 Year
  Sex: Female
  Weight: 54.87 kg

DRUGS (1)
  1. NICOTINE [Suspect]
     Dosage: UNK

REACTIONS (1)
  - Nicotine dependence [Unknown]
